FAERS Safety Report 10349461 (Version 3)
Quarter: 2014Q3

REPORT INFORMATION
  Report Type: Spontaneous
  Country: GB (occurrence: GB)
  Receive Date: 20140730
  Receipt Date: 20140827
  Transmission Date: 20150326
  Serious: Yes (Hospitalization, Other)
  Sender: FDA-Public Use
  Company Number: GB-RANBAXY-2014RR-83716

PATIENT

DRUGS (7)
  1. RISPERIDONE. [Suspect]
     Active Substance: RISPERIDONE
     Indication: PRODUCT USED FOR UNKNOWN INDICATION
     Dosage: 5 MG
     Route: 065
  2. ABILIFY [Suspect]
     Active Substance: ARIPIPRAZOLE
     Indication: PRODUCT USED FOR UNKNOWN INDICATION
     Dosage: 5 MG, UNK
     Route: 065
  3. SODIUM VALPROATE [Suspect]
     Active Substance: VALPROATE SODIUM
     Indication: PRODUCT USED FOR UNKNOWN INDICATION
     Dosage: 1.4 G
     Route: 065
  4. SODIUM VALPROATE [Suspect]
     Active Substance: VALPROATE SODIUM
  5. AUDEN MCKENZIE CLONAZEPAM [Suspect]
     Active Substance: CLONAZEPAM
     Route: 048
  6. ABILIFY [Suspect]
     Active Substance: ARIPIPRAZOLE
  7. AUDEN MCKENZIE CLONAZEPAM [Suspect]
     Active Substance: CLONAZEPAM
     Indication: BIPOLAR DISORDER
     Dosage: 2 MG, UNK
     Route: 048

REACTIONS (8)
  - Drug withdrawal syndrome [Unknown]
  - Off label use [Unknown]
  - Psychotic disorder [Not Recovered/Not Resolved]
  - Delusion [Unknown]
  - Hallucination [Unknown]
  - Muscle spasms [Unknown]
  - Palpitations [Unknown]
  - Mania [Not Recovered/Not Resolved]
